FAERS Safety Report 5427753-8 (Version None)
Quarter: 2007Q3

REPORT INFORMATION
  Report Type: 
  Country: None (occurrence: None)
  Receive Date: 20070828
  Receipt Date: 20070819
  Transmission Date: 20080115
  Serious: Yes (Hospitalization)
  Sender: FDA-Public Use
  Company Number: US-ELI_LILLY_AND_COMPANY-US200708003944

PATIENT
  Age: 70 Year
  Sex: Female
  Weight: 92.97 kg

DRUGS (10)
  1. BYETTA [Suspect]
     Indication: TYPE 2 DIABETES MELLITUS
     Dosage: 5 UG, 2/D
     Route: 058
     Dates: start: 20070701
  2. INSULIN [Concomitant]
     Dosage: UNK, UNKNOWN
     Dates: end: 20070101
  3. GLYBURIDE [Concomitant]
     Indication: DIABETES MELLITUS
     Dosage: UNK, UNKNOWN
  4. SYNTHROID [Concomitant]
     Indication: HYPOTHYROIDISM
     Dosage: 0.125 MG, DAILY (1/D)
     Route: 048
  5. OMEPRAZOLE [Concomitant]
     Indication: GASTROOESOPHAGEAL REFLUX DISEASE
     Dosage: 20 MG, DAILY (1/D)
     Route: 048
     Dates: start: 20050101
  6. LISINOPRIL [Concomitant]
     Indication: PROPHYLAXIS
     Dosage: 2.5 MG, DAILY (1/D)
     Route: 048
     Dates: start: 20060101
  7. METOPROLOL SUCCINATE [Concomitant]
     Indication: HEART RATE INCREASED
     Dosage: 12.5 MG, 2/D
     Route: 048
     Dates: start: 20070701
  8. WARFARIN [Concomitant]
     Indication: DRUG USE FOR UNKNOWN INDICATION
     Dosage: 7.5 MG, 5/W
     Route: 048
  9. WARFARIN [Concomitant]
     Dosage: 10 MG, 2/W
     Route: 048
  10. OXYCODONE HCL [Concomitant]
     Indication: ARTHRALGIA
     Dosage: 5 MG, AS NEEDED
     Route: 048

REACTIONS (4)
  - BLOOD GLUCOSE FLUCTUATION [None]
  - FEELING JITTERY [None]
  - HEART RATE INCREASED [None]
  - HYPOTENSION [None]
